FAERS Safety Report 5400057-5 (Version None)
Quarter: 2007Q3

REPORT INFORMATION
  Report Type: 
  Country: None (occurrence: None)
  Receive Date: 20070730
  Receipt Date: 20070718
  Transmission Date: 20080115
  Serious: Yes (Hospitalization)
  Sender: FDA-Public Use
  Company Number: DE-NOVOPROD-263260

PATIENT
  Sex: Female

DRUGS (4)
  1. NOVOSEVEN [Suspect]
     Indication: PROPHYLAXIS
     Dosage: 4800 UG, UNK
  2. PLATELET AGGREGATION INHIBITORS [Concomitant]
     Indication: PROPHYLAXIS
  3. ASPIRIN [Concomitant]
  4. PLAVIX [Concomitant]

REACTIONS (1)
  - SHUNT OCCLUSION [None]
